FAERS Safety Report 4300586-1 (Version None)
Quarter: 2004Q1

REPORT INFORMATION
  Report Type: 
  Country: None (occurrence: None)
  Receive Date: 20040220
  Receipt Date: 20031211
  Transmission Date: 20041129
  Serious: Yes (Hospitalization)
  Sender: FDA-Public Use
  Company Number: FR-ROCHE-353935

PATIENT
  Age: 34 Year
  Sex: Male
  Weight: 62 kg

DRUGS (6)
  1. VALCYTE [Suspect]
     Route: 048
     Dates: start: 20030815, end: 20031211
  2. COMBIVIR [Suspect]
     Indication: HIV INFECTION
     Route: 048
     Dates: start: 20030815, end: 20031211
  3. MALOCIDE [Suspect]
     Route: 048
     Dates: start: 20030815
  4. VIRACEPT [Concomitant]
     Indication: HIV INFECTION
     Route: 048
     Dates: start: 20030815
  5. LEDERFOLINE [Concomitant]
     Route: 048
     Dates: start: 20030815
  6. DAPSONE [Concomitant]
     Route: 048
     Dates: start: 20030815

REACTIONS (3)
  - ANAEMIA [None]
  - APLASIA PURE RED CELL [None]
  - HEADACHE [None]
